FAERS Safety Report 6698725-0 (Version None)
Quarter: 2010Q2

REPORT INFORMATION
  Report Type: 
  Country: None (occurrence: None)
  Receive Date: 20100427
  Receipt Date: 20090917
  Transmission Date: 20101027
  Serious: No
  Sender: FDA-Public Use
  Company Number: US-ASTRAZENECA-2009SE13959

PATIENT
  Age: 54 Year
  Sex: Female
  Weight: 58.1 kg

DRUGS (1)
  1. ZOMIG [Suspect]
     Route: 045

REACTIONS (1)
  - DYSGEUSIA [None]
